FAERS Safety Report 10238125 (Version 1)
Quarter: 2014Q2

REPORT INFORMATION
  Report Type: Report from Study
  Country: US (occurrence: US)
  Receive Date: 20140616
  Receipt Date: 20140616
  Transmission Date: 20141212
  Serious: Yes (Hospitalization, Other)
  Sender: FDA-Public Use
  Company Number: PHEH2014US011793

PATIENT
  Sex: Female

DRUGS (1)
  1. CLOZARIL [Suspect]
     Dosage: 600 MG DAILY, (200 MG MORNING , 400 MG EVENING)

REACTIONS (4)
  - Lethargy [Unknown]
  - Asthenia [Unknown]
  - Malaise [Unknown]
  - Incoherent [Unknown]
